FAERS Safety Report 7198054-5 (Version None)
Quarter: 2010Q4

REPORT INFORMATION
  Report Type: 
  Country: None (occurrence: None)
  Receive Date: 20101213
  Receipt Date: 20101202
  Transmission Date: 20110411
  Serious: Yes (Other)
  Sender: FDA-Public Use
  Company Number: 676414

PATIENT
  Age: 42 Year
  Sex: Female

DRUGS (7)
  1. CARBOPLATIN [Suspect]
     Indication: BLADDER CANCER
  2. CARBOPLATIN [Suspect]
     Indication: METASTASIS
  3. MEROPENEM [Concomitant]
  4. GENTAMICIN [Concomitant]
  5. (MST /00036302/) [Concomitant]
  6. (CYCLIZINE) [Concomitant]
  7. METOCLOPRAMIDE [Concomitant]

REACTIONS (4)
  - BLADDER CANCER [None]
  - HYPOPHOSPHATAEMIA [None]
  - MALIGNANT NEOPLASM PROGRESSION [None]
  - RENAL TUBULAR ACIDOSIS [None]
